FAERS Safety Report 10463377 (Version 1)
Quarter: 2014Q3

REPORT INFORMATION
  Report Type: Spontaneous
  Country: US (occurrence: US)
  Receive Date: 20140919
  Receipt Date: 20140919
  Transmission Date: 20150326
  Serious: No
  Sender: FDA-Public Use
  Company Number: US-SHIRE-US201406004

PATIENT
  Age: 32 Year
  Sex: Female

DRUGS (2)
  1. VYVANSE [Suspect]
     Active Substance: LISDEXAMFETAMINE DIMESYLATE
     Dosage: 20 MG, 1X/DAY:QD (AROUND NOON)
     Route: 048
     Dates: start: 2014
  2. VYVANSE [Suspect]
     Active Substance: LISDEXAMFETAMINE DIMESYLATE
     Indication: ATTENTION DEFICIT/HYPERACTIVITY DISORDER
     Dosage: 70 MG, UNKNOWN
     Route: 048

REACTIONS (9)
  - Wrong technique in drug usage process [Unknown]
  - Feeling abnormal [Unknown]
  - Product quality issue [Unknown]
  - Sluggishness [Unknown]
  - Prescribed overdose [Not Recovered/Not Resolved]
  - Drug effect decreased [Unknown]
  - Insomnia [Unknown]
  - Drug tolerance [Unknown]
  - Inappropriate schedule of drug administration [Unknown]
